FAERS Safety Report 5520199-3 (Version None)
Quarter: 2007Q4

REPORT INFORMATION
  Report Type: 
  Country: None (occurrence: None)
  Receive Date: 20071116
  Receipt Date: 20071108
  Transmission Date: 20080405
  Serious: Yes (Other)
  Sender: FDA-Public Use
  Company Number: AT-ABBOTT-07P-009-0424000-00

PATIENT
  Age: 24 Year
  Sex: Male

DRUGS (22)
  1. DEPAKENE [Suspect]
     Indication: DRUG USE FOR UNKNOWN INDICATION
     Route: 048
     Dates: start: 20070315, end: 20070516
  2. DEPAKENE [Suspect]
     Route: 048
     Dates: start: 20070312, end: 20070314
  3. DEPAKENE [Suspect]
     Route: 048
     Dates: start: 20070517, end: 20070524
  4. DEPAKENE [Suspect]
     Route: 048
     Dates: start: 20070525
  5. MIRTAZAPINE [Suspect]
     Indication: DRUG USE FOR UNKNOWN INDICATION
     Route: 048
     Dates: start: 20070306, end: 20070514
  6. OLANZAPINE [Suspect]
     Indication: DRUG USE FOR UNKNOWN INDICATION
     Route: 048
     Dates: start: 20070313, end: 20070403
  7. OLANZAPINE [Suspect]
     Route: 048
     Dates: start: 20070306, end: 20070312
  8. OLANZAPINE [Suspect]
     Route: 048
     Dates: start: 20070404, end: 20070515
  9. ESCITALOPRAM [Concomitant]
     Indication: DRUG USE FOR UNKNOWN INDICATION
     Route: 048
     Dates: start: 20070228, end: 20070305
  10. ESCITALOPRAM [Concomitant]
     Route: 048
     Dates: start: 20070306, end: 20070312
  11. PROTHIPENDYL HYDROCHLORIDE [Concomitant]
     Indication: DRUG USE FOR UNKNOWN INDICATION
     Route: 048
     Dates: start: 20070306, end: 20070314
  12. PROTHIPENDYL HYDROCHLORIDE [Concomitant]
     Route: 048
     Dates: start: 20070315, end: 20070525
  13. VENLAFAXIINE HCL [Concomitant]
     Indication: DRUG USE FOR UNKNOWN INDICATION
     Route: 048
     Dates: start: 20070312, end: 20070312
  14. VENLAFAXIINE HCL [Concomitant]
     Route: 048
     Dates: start: 20070313, end: 20070314
  15. VENLAFAXIINE HCL [Concomitant]
     Route: 048
     Dates: start: 20070315, end: 20070523
  16. PANTOPRAZOLE SODIUM [Concomitant]
     Indication: DRUG USE FOR UNKNOWN INDICATION
     Route: 048
     Dates: start: 20070314, end: 20070514
  17. OXAZEPAM [Concomitant]
     Indication: DRUG USE FOR UNKNOWN INDICATION
     Route: 048
     Dates: start: 20070301, end: 20070302
  18. OXAZEPAM [Concomitant]
     Route: 048
     Dates: start: 20070303, end: 20070304
  19. OXAZEPAM [Concomitant]
     Route: 048
     Dates: start: 20070305, end: 20070403
  20. OXAZEPAM [Concomitant]
     Route: 048
     Dates: start: 20070404, end: 20070405
  21. QUETIAPINE FUMARATE [Concomitant]
     Indication: DRUG USE FOR UNKNOWN INDICATION
     Route: 048
     Dates: start: 20070516, end: 20070525
  22. TRAZODONE HYDROCHLORIDE [Concomitant]
     Indication: DRUG USE FOR UNKNOWN INDICATION
     Route: 048
     Dates: start: 20070515, end: 20070525

REACTIONS (3)
  - HYPERCHOLESTEROLAEMIA [None]
  - HYPERLIPIDAEMIA [None]
  - WEIGHT INCREASED [None]
